FAERS Safety Report 9843930 (Version 1)
Quarter: 2013Q4

REPORT INFORMATION
  Report Type: Spontaneous
  Country: US (occurrence: None)
  Receive Date: 20131223
  Receipt Date: 20131223
  Transmission Date: 20140711
  Serious: No
  Sender: FDA-Public Use
  Company Number: 1000049709

PATIENT
  Sex: Male

DRUGS (11)
  1. LINZESS (LINACLOTIDE) (290 MICROGRAM, CAPSULES) [Suspect]
     Dosage: 290 MCG (290 MCG, 1 IN 1 D), ORAL
     Route: 048
     Dates: start: 20130926, end: 20130930
  2. ASPIRIN (ACETYLSALICYLIC ACID) (ACETYLSALICYLIC ACID) [Concomitant]
  3. LYRICA (PREGABALIN) (PREGABALIN) [Concomitant]
  4. PRIMIDONE (PRIMIDONE) (PRIMIDONE) [Concomitant]
  5. ZETIA (EZETIMIBE) (EZETIMIBE) [Concomitant]
  6. LATANOPROST (LATANOPROST) (LATANOPROST) [Concomitant]
  7. CLARITIN D (LORATADINE, PSEUDOEPHEDRINE) (LORATADINE, PSEUDOEPHEDRINE) [Concomitant]
  8. OXYBUTYNIN (OXYBUTYNIN) (OXYBUTYNIN) [Concomitant]
  9. VITAMIN D (VITAMIN D) (VITAMIN D) [Concomitant]
  10. ALLOPURINOL (ALLOPURINOL) (ALLOPURINOL) [Concomitant]
  11. OMEPRAZOLE (OMEPRAZOLE) (OMEPRAZOLE) [Concomitant]

REACTIONS (1)
  - Diarrhoea [None]
